FAERS Safety Report 7997859-8 (Version None)
Quarter: 2011Q4

REPORT INFORMATION
  Report Type: 
  Country: None (occurrence: None)
  Receive Date: 20111221
  Receipt Date: 20111213
  Transmission Date: 20120403
  Serious: Yes (Other)
  Sender: FDA-Public Use
  Company Number: PHHY2010US66665

PATIENT
  Sex: Male

DRUGS (5)
  1. AMANTADINE HCL [Concomitant]
     Dosage: 100 MG, BID
  2. EXTAVIA [Suspect]
     Indication: MULTIPLE SCLEROSIS
     Dosage: 0.25 MG, QOD
     Route: 058
     Dates: start: 20110601
  3. LEXAPRO [Concomitant]
     Dosage: 10 MG, QD
  4. MULTI-VITAMIN [Concomitant]
     Dosage: 1 DF, UNK
  5. AVODART [Concomitant]
     Dosage: UNK UKN, UNK

REACTIONS (9)
  - CENTRAL NERVOUS SYSTEM LESION [None]
  - HYPOKINESIA [None]
  - DYSSTASIA [None]
  - PAIN IN EXTREMITY [None]
  - HAEMORRHAGE [None]
  - FALL [None]
  - ABASIA [None]
  - BALANCE DISORDER [None]
  - HEAD INJURY [None]
